FAERS Safety Report 5215665-4 (Version None)
Quarter: 2007Q1

REPORT INFORMATION
  Report Type: 
  Country: None (occurrence: None)
  Receive Date: 20070117
  Receipt Date: 20070102
  Transmission Date: 20070707
  Serious: Yes (Hospitalization)
  Sender: FDA-Public Use
  Company Number: 2007IP000001

PATIENT
  Age: 86 Year
  Sex: Male

DRUGS (1)
  1. BROMFENAC OPTH SOL [Suspect]
     Indication: CATARACT OPERATION COMPLICATION
     Dosage: 2 GTT;BID;OPH
     Dates: start: 20050101

REACTIONS (6)
  - CHROMATURIA [None]
  - DYSPNOEA [None]
  - ERYTHEMA OF EYELID [None]
  - EYE PRURITUS [None]
  - PRURITUS GENERALISED [None]
  - RENAL IMPAIRMENT [None]
